FAERS Safety Report 20504389 (Version 1)
Quarter: 2022Q1

REPORT INFORMATION
  Report Type: Spontaneous
  Country: IL (occurrence: IL)
  Receive Date: 20220222
  Receipt Date: 20220222
  Transmission Date: 20220423
  Serious: Yes (Other)
  Sender: FDA-Public Use
  Company Number: IL-SUN PHARMACEUTICAL INDUSTRIES LTD-2022R1-326752

PATIENT
  Age: 48 Year
  Sex: Male

DRUGS (1)
  1. PREDNISONE [Suspect]
     Active Substance: PREDNISONE
     Indication: Encephalitis autoimmune
     Dosage: 1 MILLIGRAM/KILOGRAM, UNK
     Route: 048

REACTIONS (1)
  - Psychomotor skills impaired [Unknown]
